APPROVED DRUG PRODUCT: FLUOXETINE
Active Ingredient: FLUOXETINE HYDROCHLORIDE
Strength: EQ 10MG BASE
Dosage Form/Route: CAPSULE;ORAL
Application: A075662 | Product #001
Applicant: WATSON LABORATORIES INC
Approved: Jan 29, 2002 | RLD: No | RS: No | Type: DISCN